FAERS Safety Report 8418878-3 (Version None)
Quarter: 2012Q2

REPORT INFORMATION
  Report Type: 
  Country: None (occurrence: None)
  Receive Date: 20120607
  Receipt Date: 20120604
  Transmission Date: 20120825
  Serious: Yes (Death)
  Sender: FDA-Public Use
  Company Number: FR-SANOFI-AVENTIS-2012SA039427

PATIENT
  Age: 55 Year
  Sex: Male

DRUGS (14)
  1. ALFUZOSIN HCL [Suspect]
     Dosage: PROLONGED RELEASE
     Route: 048
     Dates: end: 20120417
  2. VENLAFAXINE [Suspect]
     Route: 048
     Dates: end: 20120417
  3. OLANZAPINE [Suspect]
     Route: 048
     Dates: start: 20120417, end: 20120417
  4. GLUCOPHAGE [Suspect]
     Route: 048
     Dates: end: 20120417
  5. NEXIUM [Suspect]
     Route: 048
     Dates: end: 20120417
  6. QUETIAPINE [Suspect]
     Dosage: EXTENDED RELEASE
     Route: 048
     Dates: start: 20120416, end: 20120416
  7. VALSARTAN  AND HYDROCHLOROTHIAZIDE [Suspect]
     Route: 048
     Dates: end: 20120417
  8. LERCANIDIPINE [Suspect]
     Route: 048
     Dates: end: 20120417
  9. ZYPREXA [Concomitant]
     Route: 048
     Dates: end: 20120416
  10. GLYBURIDE [Suspect]
     Route: 048
     Dates: end: 20120417
  11. ALPRAZOLAM [Suspect]
     Route: 048
     Dates: end: 20120417
  12. TRIMEPRAZINE TARTRATE [Suspect]
     Route: 048
     Dates: end: 20120416
  13. ZOLPIDEM [Suspect]
     Route: 048
     Dates: end: 20120416
  14. FENOFIBRATE [Suspect]
     Route: 048
     Dates: end: 20120417

REACTIONS (1)
  - SUDDEN DEATH [None]
